FAERS Safety Report 5119850-1 (Version None)
Quarter: 2006Q3

REPORT INFORMATION
  Report Type: 
  Country: None (occurrence: None)
  Receive Date: 20060929
  Receipt Date: 20060919
  Transmission Date: 20061208
  Serious: Yes (Other)
  Sender: FDA-Public Use
  Company Number: HQWYE761608AUG05

PATIENT
  Age: 66 Year
  Sex: Female

DRUGS (4)
  1. TACROLIMUS, CONTROL FOR SIROLIMUS (TACROLIMUS,  CONTROL FOR SIROLIMUS, [Suspect]
     Indication: PROPHYLAXIS AGAINST TRANSPLANT REJECTION
     Dosage: ORAL
     Route: 048
     Dates: start: 20041230, end: 20050501
  2. CELLCEPT [Concomitant]
  3. CORTICOSTEROIDS NOS (CORTICOSTEROID NOS) [Concomitant]
  4. ZENAPAX (DACLIZUAMB) [Concomitant]

REACTIONS (5)
  - BLADDER DISORDER [None]
  - RED BLOOD CELLS URINE POSITIVE [None]
  - TUMOUR MARKER INCREASED [None]
  - URINARY TRACT INFECTION [None]
  - URINE ANALYSIS ABNORMAL [None]
